FAERS Safety Report 5635366-8 (Version None)
Quarter: 2008Q1

REPORT INFORMATION
  Report Type: 
  Country: None (occurrence: None)
  Receive Date: 20080222
  Receipt Date: 20080212
  Transmission Date: 20080703
  Serious: Yes (Other)
  Sender: FDA-Public Use
  Company Number: GB-PFIZER INC-2008011641

PATIENT
  Sex: Female

DRUGS (6)
  1. CHANTIX [Suspect]
     Route: 048
     Dates: start: 20080121, end: 20080128
  2. SIMVASTATIN [Concomitant]
     Indication: CEREBROVASCULAR ACCIDENT
     Route: 048
  3. ALENDRONIC ACID [Concomitant]
     Indication: OSTEOPOROSIS
  4. CLOPIDOGREL [Concomitant]
     Indication: CEREBROVASCULAR ACCIDENT
     Route: 048
  5. VENTOLIN [Concomitant]
     Indication: ASTHMA
     Route: 055
  6. SERETIDE [Concomitant]
     Indication: ASTHMA

REACTIONS (13)
  - BACK PAIN [None]
  - CHEST PAIN [None]
  - DIZZINESS [None]
  - DYSPEPSIA [None]
  - HEADACHE [None]
  - HYPERHIDROSIS [None]
  - MOUTH ULCERATION [None]
  - MUSCULOSKELETAL STIFFNESS [None]
  - NAUSEA [None]
  - NECK PAIN [None]
  - OCULAR HYPERAEMIA [None]
  - VISION BLURRED [None]
  - VOMITING [None]
